FAERS Safety Report 7988635-0 (Version None)
Quarter: 2011Q4

REPORT INFORMATION
  Report Type: 
  Country: None (occurrence: None)
  Receive Date: 20111218
  Receipt Date: 20040527
  Transmission Date: 20120403
  Serious: Yes (Death)
  Sender: FDA-Public Use
  Company Number: PHHY2004VE005206

PATIENT
  Age: 90 Year
  Sex: Female

DRUGS (1)
  1. DIOVAN [Suspect]

REACTIONS (2)
  - BLOOD PRESSURE DECREASED [None]
  - CEREBRAL THROMBOSIS [None]
